FAERS Safety Report 8962726 (Version 1)
Quarter: 2012Q4

REPORT INFORMATION
  Report Type: Spontaneous
  Country: FI (occurrence: None)
  Receive Date: 20121206
  Receipt Date: 20121206
  Transmission Date: 20130627
  Serious: Yes (Death)
  Sender: FDA-Public Use
  Company Number: 2012P1066133

PATIENT
  Sex: Male

DRUGS (5)
  1. SERONIL (FLUOXETINE) 20 MG [Suspect]
  2. MIRTAZAPINE [Suspect]
  3. SEPRAM [Suspect]
  4. CITALOPRAM HYDROBROMIDE [Suspect]
  5. OXAZEPAM [Suspect]

REACTIONS (1)
  - Completed suicide [None]
